FAERS Safety Report 7511555-2 (Version None)
Quarter: 2011Q2

REPORT INFORMATION
  Report Type: 
  Country: None (occurrence: None)
  Receive Date: 20110531
  Receipt Date: 20110524
  Transmission Date: 20111010
  Serious: Yes (Other)
  Sender: FDA-Public Use
  Company Number: US-BRISTOL-MYERS SQUIBB COMPANY-15773138

PATIENT
  Age: 68 Year
  Sex: Female
  Weight: 63 kg

DRUGS (3)
  1. SIMVASTATIN [Suspect]
  2. WARFARIN SODIUM [Suspect]
  3. MELLARIL [Concomitant]

REACTIONS (3)
  - HYPERTENSION [None]
  - CEREBROVASCULAR ACCIDENT [None]
  - MYALGIA [None]
